FAERS Safety Report 4848632-0 (Version None)
Quarter: 2005Q4

REPORT INFORMATION
  Report Type: 
  Country: None (occurrence: None)
  Receive Date: 20051206
  Receipt Date: 20051124
  Transmission Date: 20060501
  Serious: Yes (Hospitalization)
  Sender: FDA-Public Use
  Company Number: 2005158213

PATIENT
  Age: 22 Year
  Sex: Female

DRUGS (6)
  1. VIRACEPT [Suspect]
     Indication: HIV INFECTION
     Dosage: 3000 MG (1 D), ORAL
     Dates: start: 20030806
  2. EPIVIR [Suspect]
     Indication: HIV INFECTION
     Dosage: 300 MG (150 MG, 2 IN 1 D), ORAL
     Route: 048
     Dates: start: 20031119
  3. ZERIT [Suspect]
     Indication: HIV INFECTION
     Dosage: 60 MG (1 D), ORAL
     Route: 048
     Dates: start: 20031119
  4. CLARITHROMYCIN [Suspect]
     Indication: MYCOBACTERIUM AVIUM COMPLEX INFECTION
     Dosage: 800 MG (400 MG, 2 IN 1 D), ORAL
     Route: 048
     Dates: start: 20030205
  5. ETHAMBUTOL HCL [Concomitant]
  6. SULFAMETHOXAZOLE + TRIMETHOPRIM [Concomitant]

REACTIONS (1)
  - CERVICAL DYSPLASIA [None]
